FAERS Safety Report 8758799 (Version 2)
Quarter: 2012Q4

REPORT INFORMATION
  Report Type: 
  Country: US (occurrence: US)
  Receive Date: 20120829
  Receipt Date: 20121008
  Transmission Date: 20130627
  Serious: Yes (Other)
  Sender: FDA-Public Use
  Company Number: US-ROXANE LABORATORIES, INC.-2012-RO-01738RO

PATIENT
  Sex: Female
  Weight: 37 kg

DRUGS (5)
  1. MERCAPTOPURINE [Suspect]
  2. ACTIQ [Suspect]
     Indication: CROHN^S DISEASE
     Route: 002
  3. CIPRO [Concomitant]
  4. FLAGYL [Concomitant]
  5. PENTASA [Concomitant]

REACTIONS (11)
  - Pancreatitis [Unknown]
  - Pain [Unknown]
  - Malaise [Unknown]
  - Heart rate increased [Unknown]
  - Dizziness [Unknown]
  - Off label use [Unknown]
  - Palpitations [Unknown]
  - Respiratory rate increased [Unknown]
  - Euphoric mood [Unknown]
  - Tooth loss [Unknown]
  - Thinking abnormal [Unknown]
